FAERS Safety Report 14032239 (Version 3)
Quarter: 2018Q1

REPORT INFORMATION
  Report Type: Report from Study
  Country: US (occurrence: US)
  Receive Date: 20171002
  Receipt Date: 20180226
  Transmission Date: 20180508
  Serious: Yes (Hospitalization, Other)
  Sender: FDA-Public Use
  Company Number: US-GILEAD-2017-0292688

PATIENT
  Age: 60 Year
  Sex: Male
  Weight: 102.49 kg

DRUGS (1)
  1. AMBRISENTAN [Suspect]
     Active Substance: AMBRISENTAN
     Indication: PRODUCT USED FOR UNKNOWN INDICATION
     Dosage: 10 MG, QD
     Route: 065
     Dates: start: 20170623

REACTIONS (2)
  - Dialysis [Unknown]
  - Ventricular assist device insertion [Unknown]

NARRATIVE: CASE EVENT DATE: 201703
